FAERS Safety Report 18229435 (Version 1)
Quarter: 2020Q3

REPORT INFORMATION
  Report Type: Spontaneous
  Country: US (occurrence: US)
  Receive Date: 20200903
  Receipt Date: 20200903
  Transmission Date: 20201103
  Serious: Yes (Life-Threatening, Hospitalization)
  Sender: FDA-Public Use
  Company Number: US-MYLANLABS-2020M1076197

PATIENT
  Age: 64 Year
  Sex: Female

DRUGS (2)
  1. DOXYCYCLINE. [Concomitant]
     Active Substance: DOXYCYCLINE
     Indication: PNEUMONIA
     Route: 048
  2. QUETIAPINE. [Suspect]
     Active Substance: QUETIAPINE
     Indication: PRODUCT USED FOR UNKNOWN INDICATION
     Dosage: UNK
     Route: 048

REACTIONS (7)
  - Hypotension [Recovering/Resolving]
  - Circulatory collapse [Recovering/Resolving]
  - Tachycardia [Recovering/Resolving]
  - Intentional overdose [Recovering/Resolving]
  - Encephalopathy [Recovering/Resolving]
  - Unresponsive to stimuli [Recovering/Resolving]
  - Delirium [Recovering/Resolving]
